FAERS Safety Report 16302109 (Version 1)
Quarter: 2019Q2

REPORT INFORMATION
  Report Type: Spontaneous
  Country: US (occurrence: US)
  Receive Date: 20190408
  Receipt Date: 20190408
  Transmission Date: 20190711
  Serious: Yes (Other)
  Sender: FDA-Public Use
  Company Number: None

PATIENT
  Age: 54 Year
  Sex: Male

DRUGS (1)
  1. TAFINLAR [Suspect]
     Active Substance: DABRAFENIB MESYLATE
     Dates: start: 20181210, end: 20190208

REACTIONS (3)
  - Hyperhidrosis [None]
  - Myalgia [None]
  - Pyrexia [None]

NARRATIVE: CASE EVENT DATE: 20190208
